FAERS Safety Report 10915947 (Version 2)
Quarter: 2015Q1

REPORT INFORMATION
  Report Type: Spontaneous
  Country: JP (occurrence: JP)
  Receive Date: 20150316
  Receipt Date: 20150327
  Transmission Date: 20150721
  Serious: Yes (Hospitalization)
  Sender: FDA-Public Use
  Company Number: JP-MYLANLABS-2015M1006985

PATIENT

DRUGS (3)
  1. INSULIN [Concomitant]
     Active Substance: INSULIN NOS
     Indication: TYPE 2 DIABETES MELLITUS
     Route: 058
  2. CRAVIT [Suspect]
     Active Substance: LEVOFLOXACIN
     Indication: ENTEROCOLITIS
     Route: 048
  3. CEFDITOREN PIVOXIL. [Suspect]
     Active Substance: CEFDITOREN PIVOXIL
     Indication: NASOPHARYNGITIS
     Route: 048

REACTIONS (3)
  - Pseudomembranous colitis [Recovering/Resolving]
  - Megacolon [Unknown]
  - Acute kidney injury [Unknown]
